FAERS Safety Report 4330094-3 (Version None)
Quarter: 2004Q1

REPORT INFORMATION
  Report Type: 
  Country: None (occurrence: None)
  Receive Date: 20040329
  Receipt Date: 20040317
  Transmission Date: 20041129
  Serious: Yes (Hospitalization)
  Sender: FDA-Public Use
  Company Number: JP-JNJFOC-20040203202

PATIENT
  Age: 57 Year
  Sex: Male
  Weight: 68 kg

DRUGS (2)
  1. REMICADE [Suspect]
     Indication: RHEUMATOID ARTHRITIS
     Dosage: 3 MG/KG, 1 IN 1 AS NECESSARY, INTRAVENOUS DRIP
     Route: 041
     Dates: start: 20031227, end: 20031227
  2. RHEUMATREX [Concomitant]

REACTIONS (5)
  - FALL [None]
  - HEADACHE [None]
  - LOWER LIMB FRACTURE [None]
  - TIBIA FRACTURE [None]
  - URTICARIA [None]
